FAERS Safety Report 5799794-2 (Version None)
Quarter: 2008Q3

REPORT INFORMATION
  Report Type: 
  Country: None (occurrence: None)
  Receive Date: 20080703
  Receipt Date: 20080625
  Transmission Date: 20090109
  Serious: Yes (Other)
  Sender: FDA-Public Use
  Company Number: CA-ABBOTT-08P-028-0455728-00

PATIENT
  Sex: Female
  Weight: 88.53 kg

DRUGS (1)
  1. MAVIK [Suspect]
     Indication: HYPERTENSION
     Route: 048
     Dates: start: 20080213

REACTIONS (2)
  - MENORRHAGIA [None]
  - UTERINE LEIOMYOMA [None]
